FAERS Safety Report 6189169-9 (Version None)
Quarter: 2009Q2

REPORT INFORMATION
  Report Type: 
  Country: None (occurrence: None)
  Receive Date: 20090513
  Receipt Date: 20090424
  Transmission Date: 20091009
  Serious: No
  Sender: FDA-Public Use
  Company Number: A0778719A

PATIENT
  Age: 30 Year
  Sex: Female

DRUGS (1)
  1. TREXIMET [Suspect]
     Indication: MIGRAINE
     Route: 048
     Dates: start: 20090303, end: 20090303

REACTIONS (6)
  - CHEST PAIN [None]
  - DYSPNOEA [None]
  - NONSPECIFIC REACTION [None]
  - PARAESTHESIA [None]
  - PHARYNGEAL OEDEMA [None]
  - THROAT TIGHTNESS [None]
